FAERS Safety Report 8314737-5 (Version None)
Quarter: 2012Q2

REPORT INFORMATION
  Report Type: 
  Country: None (occurrence: None)
  Receive Date: 20120426
  Receipt Date: 20120423
  Transmission Date: 20120825
  Serious: No
  Sender: FDA-Public Use
  Company Number: US-B.I. PHARMACEUTICALS,INC./RIDGEFIELD-2012-BP-09273BP

PATIENT
  Sex: Male

DRUGS (6)
  1. AMLODIPINE [Concomitant]
     Indication: HYPERTENSION
     Dosage: 2.5 MG
     Route: 048
  2. BENADRYL [Concomitant]
     Indication: HYPERTENSION
     Dosage: 20 MG
     Route: 048
  3. VITAMIN D [Concomitant]
     Indication: VITAMIN SUPPLEMENTATION
     Route: 048
  4. PRADAXA [Suspect]
     Indication: ATRIAL FIBRILLATION
     Dosage: 300 MG
     Route: 048
     Dates: start: 20120301
  5. VITAMIN B-12 [Concomitant]
     Indication: SUPPLEMENTATION THERAPY
     Dosage: 1000 MCG
     Route: 048
  6. DIGOXIN [Concomitant]
     Indication: ATRIAL FIBRILLATION
     Dosage: 250 MCG
     Route: 048

REACTIONS (1)
  - EYE MOVEMENT DISORDER [None]
